FAERS Safety Report 8571236-3 (Version None)
Quarter: 2012Q3

REPORT INFORMATION
  Report Type: 
  Country: None (occurrence: None)
  Receive Date: 20120730
  Receipt Date: 20120730
  Transmission Date: 20120928
  Serious: Yes (Hospitalization)
  Sender: FDA-Public Use
  Company Number: None

PATIENT
  Age: 64 Year
  Sex: Male
  Weight: 118.6 kg

DRUGS (2)
  1. BUMETANIDE [Suspect]
     Indication: POLYURIA
     Dosage: 2 MG BID PO
     Route: 048
     Dates: start: 20101031, end: 20120724
  2. METOLAZONE [Suspect]
     Indication: POLYURIA
     Dosage: 5 MG OTHER PO
     Route: 048
     Dates: start: 20120705, end: 20120724

REACTIONS (2)
  - HYPONATRAEMIA [None]
  - HYPOKALAEMIA [None]
